FAERS Safety Report 7307583-2 (Version None)
Quarter: 2011Q1

REPORT INFORMATION
  Report Type: 
  Country: None (occurrence: None)
  Receive Date: 20110223
  Receipt Date: 20110223
  Transmission Date: 20110831
  Serious: Yes (Other)
  Sender: FDA-Public Use
  Company Number: None

PATIENT
  Sex: Male
  Weight: 40.8237 kg

DRUGS (2)
  1. NUTROPIN AQ [Concomitant]
  2. TRIAD ALCOHOL PREP PADS N/A TRIAD [Suspect]
     Indication: THERAPEUTIC SKIN CARE TOPICAL
     Dosage: 1 PAD DAILY CUTANEOUS
     Route: 003
     Dates: start: 20071224, end: 20081201

REACTIONS (2)
  - INJECTION SITE SWELLING [None]
  - INJECTION SITE HAEMATOMA [None]
